FAERS Safety Report 16055569 (Version 2)
Quarter: 2019Q1

REPORT INFORMATION
  Report Type: Spontaneous
  Country: CN (occurrence: CN)
  Receive Date: 20190311
  Receipt Date: 20190315
  Transmission Date: 20190418
  Serious: Yes (Other)
  Sender: FDA-Public Use
  Company Number: CN-ROCHE-2274043

PATIENT
  Age: 64 Year
  Sex: Female

DRUGS (11)
  1. ZOLEDRONIC ACID [Concomitant]
     Active Substance: ZOLEDRONIC ACID
     Route: 065
     Dates: start: 2017
  2. LETROZOLE. [Concomitant]
     Active Substance: LETROZOLE
     Route: 065
     Dates: end: 201705
  3. LAPATINIB [Concomitant]
     Active Substance: LAPATINIB
     Indication: INTRADUCTAL PROLIFERATIVE BREAST LESION
     Route: 065
     Dates: start: 2018
  4. HERCEPTIN [Suspect]
     Active Substance: TRASTUZUMAB
     Indication: BREAST CANCER
     Route: 065
  5. PACLITAXEL. [Concomitant]
     Active Substance: PACLITAXEL
     Indication: BREAST CANCER
     Dosage: 4 TIMES FOR 8 CYCLES
     Route: 065
  6. DOXORUBICIN [Concomitant]
     Active Substance: DOXORUBICIN
     Indication: BREAST CANCER
     Dosage: 4 TIMES FOR 8 CYCLES
     Route: 065
  7. HERCEPTIN [Suspect]
     Active Substance: TRASTUZUMAB
     Indication: INTRADUCTAL PROLIFERATIVE BREAST LESION
  8. CYCLOPHOSPHAMIDE. [Concomitant]
     Active Substance: CYCLOPHOSPHAMIDE
     Indication: BREAST CANCER
     Dosage: 4 TIMES FOR 8 CYCLES
     Route: 065
  9. LETROZOLE. [Concomitant]
     Active Substance: LETROZOLE
     Route: 065
     Dates: start: 2017, end: 20180113
  10. FULVESTRANT. [Concomitant]
     Active Substance: FULVESTRANT
     Dosage: 4 CYCLES
     Route: 065
     Dates: start: 2018
  11. VINORELBINE [Concomitant]
     Active Substance: VINORELBINE\VINORELBINE TARTRATE
     Indication: INTRADUCTAL PROLIFERATIVE BREAST LESION
     Dosage: 6 CYCLES
     Route: 065
     Dates: start: 2018, end: 2018

REACTIONS (4)
  - Bronchial disorder [Unknown]
  - Dyspnoea [Unknown]
  - Angina pectoris [Unknown]
  - Lung infection [Unknown]
